FAERS Safety Report 6521929-4 (Version None)
Quarter: 2009Q4

REPORT INFORMATION
  Report Type: 
  Country: None (occurrence: None)
  Receive Date: 20091230
  Receipt Date: 20091222
  Transmission Date: 20100525
  Serious: No
  Sender: FDA-Public Use
  Company Number: JP-ABBOTT-09P-087-0611248-00

PATIENT
  Sex: Male
  Weight: 72 kg

DRUGS (2)
  1. SEVOFRANE [Suspect]
     Indication: ANAESTHESIA
     Route: 055
     Dates: start: 20080619, end: 20080619
  2. PROPOFOL [Concomitant]
     Indication: ANAESTHESIA
     Route: 042
     Dates: start: 20080619, end: 20080619

REACTIONS (1)
  - LIVER DISORDER [None]
